FAERS Safety Report 4844553-8 (Version None)
Quarter: 2005Q4

REPORT INFORMATION
  Report Type: 
  Country: None (occurrence: None)
  Receive Date: 20051130
  Receipt Date: 20051130
  Transmission Date: 20060501
  Serious: Yes (Other)
  Sender: FDA-Public Use
  Company Number: None

PATIENT
  Sex: Female
  Weight: 67.586 kg

DRUGS (1)
  1. DURAGESIC PATCHES [Suspect]
     Indication: ARNOLD-CHIARI MALFORMATION
     Dosage: 150MCG APPLY Q DAY
     Dates: start: 20050520

REACTIONS (1)
  - URTICARIA [None]
